FAERS Safety Report 6134739-7 (Version None)
Quarter: 2009Q1

REPORT INFORMATION
  Report Type: 
  Country: None (occurrence: None)
  Receive Date: 20090327
  Receipt Date: 20090318
  Transmission Date: 20090719
  Serious: Yes (Death, Disabling)
  Sender: FDA-Public Use
  Company Number: US-ROCHE-608558

PATIENT
  Sex: Male

DRUGS (1)
  1. MYCOPHENOLATE MOFETIL [Suspect]
     Route: 065
     Dates: start: 20061201, end: 20070623

REACTIONS (4)
  - ASTHENIA [None]
  - COMPLICATIONS OF TRANSPLANTED LUNG [None]
  - IDIOPATHIC PULMONARY FIBROSIS [None]
  - LUNG TRANSPLANT REJECTION [None]
